FAERS Safety Report 16760330 (Version 2)
Quarter: 2019Q3

REPORT INFORMATION
  Report Type: Spontaneous
  Country: US (occurrence: US)
  Receive Date: 20190830
  Receipt Date: 20190905
  Transmission Date: 20191005
  Serious: No
  Sender: FDA-Public Use
  Company Number: US-PFIZER INC-2019373298

PATIENT
  Age: 56 Year
  Sex: Male
  Weight: 88.44 kg

DRUGS (2)
  1. NITROSTAT [Suspect]
     Active Substance: NITROGLYCERIN
     Indication: OESOPHAGEAL SPASM
     Dosage: 50 MG, 2X/DAY(25MG IN THE MORNING AND 25MG AT NIGHT))
  2. NITROSTAT [Suspect]
     Active Substance: NITROGLYCERIN
     Indication: HEADACHE

REACTIONS (3)
  - Off label use [Unknown]
  - Headache [Recovering/Resolving]
  - Drug effective for unapproved indication [Unknown]
